FAERS Safety Report 19279034 (Version 2)
Quarter: 2021Q3

REPORT INFORMATION
  Report Type: Spontaneous
  Country: US (occurrence: US)
  Receive Date: 20210520
  Receipt Date: 20210716
  Transmission Date: 20211014
  Serious: Yes (Other)
  Sender: FDA-Public Use
  Company Number: US-TEVA-2021-US-1912794

PATIENT
  Sex: Male
  Weight: 111.13 kg

DRUGS (1)
  1. NIACIN. [Suspect]
     Active Substance: NIACIN
     Indication: NICOTINIC ACID DEFICIENCY
     Dosage: STOPPED TAKING 5?10 YEARS AGO
     Route: 065

REACTIONS (2)
  - Loss of consciousness [Unknown]
  - Hot flush [Unknown]
